FAERS Safety Report 23145491 (Version 2)
Quarter: 2024Q2

REPORT INFORMATION
  Report Type: Spontaneous
  Country: PL (occurrence: PL)
  Receive Date: 20231103
  Receipt Date: 20240418
  Transmission Date: 20240716
  Serious: Yes (Death, Other)
  Sender: FDA-Public Use
  Company Number: PL-MYLANLABS-2023M1115863

PATIENT
  Age: 53 Year
  Sex: Male

DRUGS (3)
  1. CEFTRIAXONE SODIUM [Suspect]
     Active Substance: CEFTRIAXONE SODIUM
     Indication: Product used for unknown indication
     Dosage: UNK
     Route: 065
  2. CLARITHROMYCIN [Suspect]
     Active Substance: CLARITHROMYCIN
     Indication: Product used for unknown indication
     Dosage: UNK
     Route: 065
  3. LEVOFLOXACIN [Suspect]
     Active Substance: LEVOFLOXACIN
     Indication: Product used for unknown indication
     Dosage: UNK
     Route: 065

REACTIONS (6)
  - Death [Fatal]
  - Rhabdomyolysis [Unknown]
  - Multiple organ dysfunction syndrome [Unknown]
  - Ileus [Unknown]
  - Renal impairment [Unknown]
  - Drug ineffective [Unknown]
